FAERS Safety Report 4497828-9 (Version None)
Quarter: 2004Q4

REPORT INFORMATION
  Report Type: 
  Country: None (occurrence: None)
  Receive Date: 20041110
  Receipt Date: 20041102
  Transmission Date: 20050328
  Serious: Yes (Other)
  Sender: FDA-Public Use
  Company Number: US-GLAXOSMITHKLINE-A0532245A

PATIENT
  Sex: Female

DRUGS (3)
  1. LAMICTAL [Suspect]
     Indication: BIPOLAR DISORDER
     Route: 048
     Dates: start: 20011001
  2. HERBAL PRODUCT [Concomitant]
  3. MULTIVITAMIN [Concomitant]

REACTIONS (21)
  - CRYING [None]
  - DEPRESSION [None]
  - DIPLOPIA [None]
  - DIZZINESS [None]
  - DRUG WITHDRAWAL SYNDROME [None]
  - FATIGUE [None]
  - HYPERPHAGIA [None]
  - HYPERSOMNIA [None]
  - IMPAIRED DRIVING ABILITY [None]
  - IMPULSIVE BEHAVIOUR [None]
  - INAPPROPRIATE AFFECT [None]
  - INSOMNIA [None]
  - IRRITABILITY [None]
  - NAIL DISORDER [None]
  - PERFORMANCE STATUS DECREASED [None]
  - SOMNOLENCE [None]
  - SUICIDAL IDEATION [None]
  - TINNITUS [None]
  - TREATMENT NONCOMPLIANCE [None]
  - VITAMIN B COMPLEX DEFICIENCY [None]
  - WEIGHT DECREASED [None]
